FAERS Safety Report 7454938-1 (Version None)
Quarter: 2011Q2

REPORT INFORMATION
  Report Type: 
  Country: None (occurrence: None)
  Receive Date: 20110503
  Receipt Date: 20110418
  Transmission Date: 20111010
  Serious: Yes (Hospitalization)
  Sender: FDA-Public Use
  Company Number: US-BRISTOL-MYERS SQUIBB COMPANY-15661572

PATIENT
  Age: 41 Year
  Sex: Male
  Weight: 67 kg

DRUGS (7)
  1. CISPLATIN [Suspect]
     Indication: NON-SMALL CELL LUNG CANCER
     Dosage: INTERRUPTED ON 22APR11 DURTION:30 DAYS C2 D1 ON 15APR11
     Route: 042
     Dates: start: 20110324
  2. CETUXIMAB [Suspect]
     Indication: NON-SMALL CELL LUNG CANCER
     Dosage: INTERRUPTED ON 22APR11 DURATION:30 DAYS C2 D1 ON 15APR11
     Route: 042
     Dates: start: 20110324
  3. LORAZEPAM [Concomitant]
  4. FENTANYL [Concomitant]
  5. NEURONTIN [Concomitant]
  6. GEMCITABINE HCL [Suspect]
     Indication: NON-SMALL CELL LUNG CANCER
     Dosage: INTERRUPTED ON 22APR11 DURTION:30 DAYS C2 D1 ON 15APR11
     Route: 042
     Dates: start: 20110324
  7. OXYCODONE [Concomitant]

REACTIONS (2)
  - PNEUMATOSIS INTESTINALIS [None]
  - PAIN [None]
